FAERS Safety Report 7982023-9 (Version None)
Quarter: 2011Q4

REPORT INFORMATION
  Report Type: 
  Country: None (occurrence: None)
  Receive Date: 20111212
  Receipt Date: 20111201
  Transmission Date: 20120403
  Serious: Yes (Disabling, Other)
  Sender: FDA-Public Use
  Company Number: 2011SP056626

PATIENT
  Age: 20 Year
  Sex: Female
  Weight: 76.2043 kg

DRUGS (1)
  1. IMPLANON [Suspect]
     Indication: CONTRACEPTION
     Dates: start: 20100628, end: 20111202

REACTIONS (3)
  - RETINAL ARTERY THROMBOSIS [None]
  - BLINDNESS UNILATERAL [None]
  - SYSTEMIC LUPUS ERYTHEMATOSUS [None]
